FAERS Safety Report 5104167-1 (Version None)
Quarter: 2006Q3

REPORT INFORMATION
  Report Type: 
  Country: None (occurrence: None)
  Receive Date: 20060911
  Receipt Date: 20060901
  Transmission Date: 20061208
  Serious: Yes (Disabling)
  Sender: FDA-Public Use
  Company Number: CH-2006-022289

PATIENT
  Age: 42 Year
  Sex: Female

DRUGS (1)
  1. YASMIN [Suspect]
     Indication: ORAL CONTRACEPTION
     Dosage: 1 TAB, ORAL
     Route: 048
     Dates: start: 19950101, end: 20060807

REACTIONS (2)
  - CONDITION AGGRAVATED [None]
  - DEAFNESS UNILATERAL [None]
